FAERS Safety Report 5336666-1 (Version None)
Quarter: 2007Q2

REPORT INFORMATION
  Report Type: 
  Country: None (occurrence: None)
  Receive Date: 20070529
  Receipt Date: 20070518
  Transmission Date: 20071010
  Serious: Yes (Other)
  Sender: FDA-Public Use
  Company Number: CA-JNJFOC-20070504840

PATIENT
  Age: 48 Year
  Sex: Female

DRUGS (3)
  1. TRAMACET [Suspect]
     Indication: BACK PAIN
     Route: 048
  2. PAXIL [Concomitant]
     Route: 065
  3. MOBIC [Concomitant]
     Route: 065

REACTIONS (1)
  - MENSTRUAL DISORDER [None]
